FAERS Safety Report 26195306 (Version 1)
Quarter: 2025Q4

REPORT INFORMATION
  Report Type: Spontaneous
  Country: US (occurrence: US)
  Receive Date: 20251224
  Receipt Date: 20251224
  Transmission Date: 20260118
  Serious: No
  Sender: NEUROCRINE BIOSCIENCES
  Company Number: US-NEUROCRINE BIOSCIENCES INC.-2025NBI16847

PATIENT

DRUGS (1)
  1. INGREZZA [Suspect]
     Active Substance: VALBENAZINE DITOSYLATE
     Indication: Product used for unknown indication
     Dosage: 80 MILLIGRAM
     Route: 065

REACTIONS (1)
  - Drug ineffective [Unknown]
